FAERS Safety Report 4320712-8 (Version None)
Quarter: 2004Q1

REPORT INFORMATION
  Report Type: 
  Country: None (occurrence: None)
  Receive Date: 20040318
  Receipt Date: 20040304
  Transmission Date: 20041129
  Serious: Yes (Hospitalization)
  Sender: FDA-Public Use
  Company Number: RENA-10629

PATIENT
  Age: 52 Year
  Sex: Male

DRUGS (1)
  1. PHOSBLOCK-250 MG TABLET [Suspect]
     Indication: HYPERPHOSPHATAEMIA
     Dosage: 3 G QD PO
     Route: 048
     Dates: start: 20030804, end: 20030912

REACTIONS (5)
  - ABDOMINAL PAIN [None]
  - COLITIS ISCHAEMIC [None]
  - CONSTIPATION [None]
  - DIARRHOEA [None]
  - LARGE INTESTINAL ULCER [None]
